FAERS Safety Report 24230433 (Version 1)
Quarter: 2024Q3

REPORT INFORMATION
  Report Type: Report from Study
  Country: FR (occurrence: FR)
  Receive Date: 20240821
  Receipt Date: 20240821
  Transmission Date: 20241017
  Serious: Yes (Other)
  Sender: RANBAXY
  Company Number: FR-SUN PHARMACEUTICAL INDUSTRIES LTD-2024R1-463415

PATIENT
  Age: 27 Year
  Sex: Female

DRUGS (4)
  1. ASPIRIN [Suspect]
     Active Substance: ASPIRIN
     Indication: Immunomodulatory therapy
     Route: 065
  2. HYDROXYCHLOROQUINE [Suspect]
     Active Substance: HYDROXYCHLOROQUINE
     Indication: Immunomodulatory therapy
     Route: 065
  3. PREDNISONE [Suspect]
     Active Substance: PREDNISONE
     Indication: Immunomodulatory therapy
     Route: 065
  4. UNSPECIFIED INGREDIENT [Suspect]
     Active Substance: UNSPECIFIED INGREDIENT
     Indication: Immunomodulatory therapy
     Route: 065

REACTIONS (3)
  - Exposure during pregnancy [Unknown]
  - Premature delivery [Not Recovered/Not Resolved]
  - Drug ineffective [Unknown]
